FAERS Safety Report 23720006 (Version 3)
Quarter: 2024Q2

REPORT INFORMATION
  Report Type: Spontaneous
  Country: US (occurrence: US)
  Receive Date: 20240408
  Receipt Date: 20240507
  Transmission Date: 20240715
  Serious: Yes (Other)
  Sender: FDA-Public Use
  Company Number: US-MLMSERVICE-20240326-4908739-1

PATIENT
  Sex: Female

DRUGS (2)
  1. FENTANYL CITRATE [Suspect]
     Active Substance: FENTANYL CITRATE
     Dosage: 0.25 G, DAILY (INJECTION, IN HAND AND ARM)
  2. COCAINE [Suspect]
     Active Substance: COCAINE
     Dosage: UNK, DAILY (INJECTION, IN HAND AND ARM)

REACTIONS (4)
  - Drug abuse [Not Recovered/Not Resolved]
  - Drug use disorder [Not Recovered/Not Resolved]
  - Infection [Unknown]
  - Overdose [Unknown]
